FAERS Safety Report 6209485-1 (Version None)
Quarter: 2009Q2

REPORT INFORMATION
  Report Type: 
  Country: None (occurrence: None)
  Receive Date: 20090522
  Receipt Date: 20090430
  Transmission Date: 20091009
  Serious: Yes (Hospitalization)
  Sender: FDA-Public Use
  Company Number: PLDN000322009

PATIENT
  Age: 59 Year
  Sex: Male

DRUGS (3)
  1. FOMEPIZOLE [Suspect]
     Indication: POISONING
     Dosage: ONE 1020MG INFUSION AND TWO 530MG INFUSIONS
     Route: 042
  2. LORAZEPAM [Concomitant]
  3. MORPHINE [Concomitant]

REACTIONS (2)
  - BLOOD PRESSURE DECREASED [None]
  - HEART RATE DECREASED [None]
